FAERS Safety Report 25632484 (Version 1)
Quarter: 2025Q3

REPORT INFORMATION
  Report Type: Spontaneous
  Country: US (occurrence: US)
  Receive Date: 20250801
  Receipt Date: 20250801
  Transmission Date: 20251020
  Serious: Yes (Other)
  Sender: MYLAN
  Company Number: US-MYLANLABS-2025M1062670

PATIENT
  Age: 8 Decade
  Sex: Female

DRUGS (28)
  1. METHOTREXATE [Suspect]
     Active Substance: METHOTREXATE
     Indication: Psoriasis
  2. METHOTREXATE [Suspect]
     Active Substance: METHOTREXATE
     Indication: Psoriatic arthropathy
     Route: 065
  3. METHOTREXATE [Suspect]
     Active Substance: METHOTREXATE
     Route: 065
  4. METHOTREXATE [Suspect]
     Active Substance: METHOTREXATE
  5. RISANKIZUMAB [Suspect]
     Active Substance: RISANKIZUMAB
     Indication: Psoriasis
  6. RISANKIZUMAB [Suspect]
     Active Substance: RISANKIZUMAB
     Indication: Psoriatic arthropathy
     Route: 065
  7. RISANKIZUMAB [Suspect]
     Active Substance: RISANKIZUMAB
     Route: 065
  8. RISANKIZUMAB [Suspect]
     Active Substance: RISANKIZUMAB
  9. SECUKINUMAB [Suspect]
     Active Substance: SECUKINUMAB
     Indication: Psoriasis
  10. SECUKINUMAB [Suspect]
     Active Substance: SECUKINUMAB
     Indication: Psoriatic arthropathy
     Route: 065
  11. SECUKINUMAB [Suspect]
     Active Substance: SECUKINUMAB
     Route: 065
  12. SECUKINUMAB [Suspect]
     Active Substance: SECUKINUMAB
  13. ADALIMUMAB [Suspect]
     Active Substance: ADALIMUMAB
     Indication: Psoriasis
  14. ADALIMUMAB [Suspect]
     Active Substance: ADALIMUMAB
     Indication: Psoriatic arthropathy
     Route: 065
  15. ADALIMUMAB [Suspect]
     Active Substance: ADALIMUMAB
     Route: 065
  16. ADALIMUMAB [Suspect]
     Active Substance: ADALIMUMAB
  17. APREMILAST [Suspect]
     Active Substance: APREMILAST
     Indication: Psoriasis
  18. APREMILAST [Suspect]
     Active Substance: APREMILAST
     Indication: Psoriatic arthropathy
     Route: 065
  19. APREMILAST [Suspect]
     Active Substance: APREMILAST
     Route: 065
  20. APREMILAST [Suspect]
     Active Substance: APREMILAST
  21. TILDRAKIZUMAB [Suspect]
     Active Substance: TILDRAKIZUMAB
     Indication: Psoriasis
  22. TILDRAKIZUMAB [Suspect]
     Active Substance: TILDRAKIZUMAB
     Indication: Psoriatic arthropathy
     Route: 065
  23. TILDRAKIZUMAB [Suspect]
     Active Substance: TILDRAKIZUMAB
     Route: 065
  24. TILDRAKIZUMAB [Suspect]
     Active Substance: TILDRAKIZUMAB
  25. IXEKIZUMAB [Suspect]
     Active Substance: IXEKIZUMAB
     Indication: Psoriasis
  26. IXEKIZUMAB [Suspect]
     Active Substance: IXEKIZUMAB
     Indication: Psoriatic arthropathy
     Route: 065
  27. IXEKIZUMAB [Suspect]
     Active Substance: IXEKIZUMAB
     Route: 065
  28. IXEKIZUMAB [Suspect]
     Active Substance: IXEKIZUMAB

REACTIONS (1)
  - Treatment failure [Unknown]
